FAERS Safety Report 11624414 (Version 1)
Quarter: 2015Q4

REPORT INFORMATION
  Report Type: Spontaneous
  Country: US (occurrence: None)
  Receive Date: 20151009
  Receipt Date: 20151009
  Transmission Date: 20160304
  Serious: Yes (Hospitalization)
  Sender: FDA-Public Use
  Company Number: None

PATIENT
  Age: 67 Year
  Sex: Female
  Weight: 53.4 kg

DRUGS (1)
  1. CISPLATIN. [Suspect]
     Active Substance: CISPLATIN
     Dates: end: 20150915

REACTIONS (9)
  - Catheter site swelling [None]
  - Blood alkaline phosphatase increased [None]
  - Jugular vein thrombosis [None]
  - Catheter site erythema [None]
  - Aspartate aminotransferase increased [None]
  - Alanine aminotransferase increased [None]
  - Appetite disorder [None]
  - Blood sodium decreased [None]
  - Haemoglobin decreased [None]

NARRATIVE: CASE EVENT DATE: 20150930
